FAERS Safety Report 7397698-5 (Version None)
Quarter: 2011Q2

REPORT INFORMATION
  Report Type: 
  Country: None (occurrence: None)
  Receive Date: 20110406
  Receipt Date: 20110330
  Transmission Date: 20111010
  Serious: Yes (Other)
  Sender: FDA-Public Use
  Company Number: DE-PFIZER INC-2011040366

PATIENT
  Age: 47 Year
  Sex: Male

DRUGS (1)
  1. ECALTA [Suspect]
     Indication: SEPSIS
     Dosage: UNK
     Dates: start: 20110207

REACTIONS (2)
  - CHOLANGITIS [None]
  - DRUG INEFFECTIVE [None]
